FAERS Safety Report 5008353-0 (Version None)
Quarter: 2006Q2

REPORT INFORMATION
  Report Type: 
  Country: None (occurrence: None)
  Receive Date: 20060404
  Receipt Date: 20060126
  Transmission Date: 20061013
  Serious: No
  Sender: FDA-Public Use
  Company Number: US200601005477

PATIENT
  Age: 33 Year
  Sex: Female

DRUGS (1)
  1. CYMBALTA [Suspect]
     Dosage: 30 MG, CAPSULE
     Dates: start: 20051201, end: 20051201

REACTIONS (2)
  - DEPERSONALISATION [None]
  - DEREALISATION [None]
